FAERS Safety Report 21930995 (Version 1)
Quarter: 2023Q1

REPORT INFORMATION
  Report Type: Spontaneous
  Country: US (occurrence: None)
  Receive Date: 20230130
  Receipt Date: 20230130
  Transmission Date: 20230418
  Serious: Yes (Death)
  Sender: FDA-Public Use
  Company Number: None

PATIENT
  Age: 63 Year
  Sex: Female

DRUGS (8)
  1. AMBRISENTAN [Suspect]
     Active Substance: AMBRISENTAN
     Indication: Pulmonary arterial hypertension
     Dosage: 5 MG ORAL??TAKE 1 TABLET BY MOUTH ONCE DAILY
     Route: 048
     Dates: start: 20220524, end: 20230129
  2. AMBRISENTAN [Suspect]
     Active Substance: AMBRISENTAN
     Dosage: FREQUENCY : DAILY;?
     Route: 048
  3. COLESTIPOL [Concomitant]
  4. CRESTOR [Concomitant]
     Active Substance: ROSUVASTATIN CALCIUM
  5. GABAPENTIN [Concomitant]
     Active Substance: GABAPENTIN
  6. LASIX [Concomitant]
     Active Substance: FUROSEMIDE
  7. REMODULIN [Concomitant]
     Active Substance: TREPROSTINIL
  8. SILDENAFIL [Concomitant]
     Active Substance: SILDENAFIL

REACTIONS (1)
  - Death [None]

NARRATIVE: CASE EVENT DATE: 20230129
